FAERS Safety Report 18129190 (Version 1)
Quarter: 2020Q3

REPORT INFORMATION
  Report Type: Spontaneous
  Country: US (occurrence: US)
  Receive Date: 20200807
  Receipt Date: 20200807
  Transmission Date: 20201103
  Serious: Yes (Hospitalization)
  Sender: FDA-Public Use
  Company Number: None

PATIENT
  Age: 73 Year
  Sex: Male

DRUGS (1)
  1. ZYTIGA [Suspect]
     Active Substance: ABIRATERONE ACETATE
     Indication: PROSTATE CANCER
     Dosage: 250MG 4 TABLETS ONCE DAILY ORAL
     Route: 048
     Dates: start: 20200310

REACTIONS (5)
  - Prostate cancer metastatic [None]
  - Dyspnoea [None]
  - Metastases to bone [None]
  - Pain [None]
  - Fluid overload [None]

NARRATIVE: CASE EVENT DATE: 202007
